FAERS Safety Report 16567806 (Version 2)
Quarter: 2019Q3

REPORT INFORMATION
  Report Type: Spontaneous
  Country: US (occurrence: US)
  Receive Date: 20190712
  Receipt Date: 20190812
  Transmission Date: 20191004
  Serious: Yes (Other)
  Sender: FDA-Public Use
  Company Number: US-GLAXOSMITHKLINE-US2019AMR125736

PATIENT
  Sex: Female

DRUGS (1)
  1. NUCALA [Suspect]
     Active Substance: MEPOLIZUMAB
     Indication: ASTHMA
     Dosage: UNK
     Route: 058
     Dates: start: 201709

REACTIONS (7)
  - Depressed mood [Unknown]
  - Lung infection [Unknown]
  - Dyspnoea [Unknown]
  - Panic reaction [Unknown]
  - Chest discomfort [Unknown]
  - Sinusitis [Unknown]
  - Feeling abnormal [Unknown]
